FAERS Safety Report 25849334 (Version 2)
Quarter: 2025Q4

REPORT INFORMATION
  Report Type: Report from Study
  Country: US (occurrence: US)
  Receive Date: 20250925
  Receipt Date: 20251013
  Transmission Date: 20260119
  Serious: Yes (Other)
  Sender: ABBVIE
  Company Number: US-ABBVIE-6475652

PATIENT
  Sex: Female
  Weight: 68.038 kg

DRUGS (4)
  1. SKYRIZI [Suspect]
     Active Substance: RISANKIZUMAB-RZAA
     Indication: Psoriatic arthropathy
     Dosage: FORM STRENGTH :150 MILLIGRAM
     Route: 058
     Dates: start: 20230815, end: 202506
  2. SKYRIZI [Suspect]
     Active Substance: RISANKIZUMAB-RZAA
     Dosage: FORM STRENGTH :150 MILLIGRAM
     Route: 058
     Dates: start: 202508
  3. ZOLOFT [Concomitant]
     Active Substance: SERTRALINE HYDROCHLORIDE
     Indication: Anxiety
  4. BUPROPION [Concomitant]
     Active Substance: BUPROPION
     Indication: Anxiety

REACTIONS (1)
  - Foot deformity [Recovering/Resolving]
